FAERS Safety Report 4701636-0 (Version None)
Quarter: 2005Q2

REPORT INFORMATION
  Report Type: 
  Country: None (occurrence: None)
  Receive Date: 20050627
  Receipt Date: 20050621
  Transmission Date: 20051028
  Serious: Yes (Hospitalization)
  Sender: FDA-Public Use
  Company Number: 2005068261

PATIENT
  Age: 68 Year
  Sex: Female

DRUGS (9)
  1. TAHOR (ATORVASTATIN) [Suspect]
     Indication: ILL-DEFINED DISORDER
     Dosage: ORAL
     Route: 048
  2. COVERSYL (PERINDOPRIL) [Suspect]
     Indication: ILL-DEFINED DISORDER
     Dosage: ORAL
     Route: 048
  3. LASIX [Suspect]
     Indication: ILL-DEFINED DISORDER
     Dosage: ORAL
     Route: 048
  4. ALDACTONE [Concomitant]
  5. KARDEGIC (ACETYLSALICYLATE LYSINE) [Concomitant]
  6. ROVAMYCINE (SPIRAMYCIN) [Concomitant]
  7. POLARAMINE [Concomitant]
  8. DIPROSONE [Concomitant]
  9. BISEPTINE (BENZALKONIUM CHLORIDE, BENZYL ALCOHOL, CHLORHEXIDINE) [Concomitant]

REACTIONS (10)
  - ACUTE PULMONARY OEDEMA [None]
  - CARDIAC FAILURE [None]
  - CUTANEOUS VASCULITIS [None]
  - DISSEMINATED INTRAVASCULAR COAGULATION [None]
  - HYPOTHYROIDISM [None]
  - MYOCARDIAL INFARCTION [None]
  - PRURIGO [None]
  - REFUSAL OF EXAMINATION [None]
  - SUPERINFECTION LUNG [None]
  - VASCULITIS NECROTISING [None]
